FAERS Safety Report 12998022 (Version 1)
Quarter: 2016Q4

REPORT INFORMATION
  Report Type: Spontaneous
  Country: US (occurrence: US)
  Receive Date: 20161205
  Receipt Date: 20161205
  Transmission Date: 20170207
  Serious: Yes (Other)
  Sender: FDA-Public Use
  Company Number: US-CLINIGEN GROUP PLC/ CLINIGEN HEALTHCARE LTD-E2B_00002394

PATIENT
  Age: 64 Year
  Sex: Male
  Weight: 84 kg

DRUGS (7)
  1. ETHYOL [Suspect]
     Active Substance: AMIFOSTINE
     Indication: ADVERSE DRUG REACTION
     Dosage: 500 MG QD 18 MONTH(S)
     Route: 042
     Dates: start: 20000724, end: 20020104
  2. ZESTRIL [Concomitant]
     Active Substance: LISINOPRIL
     Route: 065
  3. RADIATION THERAPY [Suspect]
     Active Substance: RADIATION THERAPY
     Indication: LYMPHOPROLIFERATIVE DISORDER
     Dosage: UNKNOWN  UNKNOWN
     Route: 050
  4. PROCRIT [Concomitant]
     Active Substance: ERYTHROPOIETIN
     Route: 065
  5. NORMODYNE (LABETALOL HCL) [Concomitant]
     Route: 065
  6. THALIDOMIDE [Concomitant]
     Active Substance: THALIDOMIDE
     Route: 065
  7. ZOLADEX [Concomitant]
     Active Substance: GOSERELIN ACETATE
     Route: 065

REACTIONS (5)
  - Hypokalaemia [Unknown]
  - Hypomagnesaemia [Unknown]
  - Muscular weakness [Unknown]
  - Haemoglobin decreased [Unknown]
  - Hypocalcaemia [Unknown]

NARRATIVE: CASE EVENT DATE: 20011221
